FAERS Safety Report 10078898 (Version 2)
Quarter: 2014Q2

REPORT INFORMATION
  Report Type: Spontaneous
  Country: US (occurrence: US)
  Receive Date: 20140415
  Receipt Date: 20140421
  Transmission Date: 20141212
  Serious: Yes (Other)
  Sender: FDA-Public Use
  Company Number: US-ABBVIE-14P-163-1224276-00

PATIENT
  Age: 76 Year
  Sex: Male
  Weight: 64.47 kg

DRUGS (10)
  1. CREON [Suspect]
     Indication: PANCREATECTOMY
     Dates: start: 201004
  2. DIGOXIN [Concomitant]
     Indication: ATRIAL FIBRILLATION
  3. DILTIAZEM [Concomitant]
     Indication: PRODUCT USED FOR UNKNOWN INDICATION
  4. WARFARIN [Concomitant]
     Indication: ATRIAL FIBRILLATION
  5. OMEPRAZOLE [Concomitant]
     Indication: GASTROOESOPHAGEAL REFLUX DISEASE
  6. LISINOPRIL [Concomitant]
     Indication: RENAL DISORDER
  7. LISINOPRIL [Concomitant]
     Indication: PROPHYLAXIS
  8. FINASTERIDE [Concomitant]
     Indication: PROSTATOMEGALY
  9. VITAMIN D [Concomitant]
     Indication: VITAMIN SUPPLEMENTATION
  10. FISH OIL [Concomitant]
     Indication: PRODUCT USED FOR UNKNOWN INDICATION

REACTIONS (1)
  - Skin cancer [Unknown]
